FAERS Safety Report 6449308-9 (Version None)
Quarter: 2009Q4

REPORT INFORMATION
  Report Type: 
  Country: None (occurrence: None)
  Receive Date: 20091120
  Receipt Date: 20091110
  Transmission Date: 20100525
  Serious: Yes (Other)
  Sender: FDA-Public Use
  Company Number: US-WYE-H12102709

PATIENT
  Age: 20 Year
  Sex: Female

DRUGS (5)
  1. EFFEXOR XR [Suspect]
     Indication: AFFECTIVE DISORDER
     Dosage: PERIODICALLY TOOK INCREASING DOSES OF 37.5, 75, 150 MG DAILY OVER THE PAST YEAR
     Route: 048
     Dates: start: 20080101, end: 20091023
  2. EFFEXOR XR [Suspect]
     Indication: MOOD SWINGS
  3. EFFEXOR [Suspect]
     Indication: AFFECTIVE DISORDER
     Route: 048
     Dates: start: 20091001, end: 20090101
  4. EFFEXOR [Suspect]
     Indication: MOOD SWINGS
     Route: 048
     Dates: start: 20090101
  5. DIAMORPHINE [Suspect]
     Dosage: UNKNOWN

REACTIONS (6)
  - DRUG WITHDRAWAL SYNDROME [None]
  - FEELING ABNORMAL [None]
  - MALAISE [None]
  - PAIN [None]
  - SUICIDAL IDEATION [None]
  - VISUAL IMPAIRMENT [None]
